FAERS Safety Report 8398123-8 (Version None)
Quarter: 2012Q2

REPORT INFORMATION
  Report Type: 
  Country: None (occurrence: None)
  Receive Date: 20120531
  Receipt Date: 20120522
  Transmission Date: 20120825
  Serious: Yes (Hospitalization)
  Sender: FDA-Public Use
  Company Number: PHHY2010PT88388

PATIENT
  Age: 6 Year
  Sex: Male

DRUGS (2)
  1. VALPROIC ACID [Suspect]
     Indication: EPILEPSY
     Dosage: UNK
  2. PHENOBARBITAL TAB [Suspect]
     Indication: EPILEPSY
     Dosage: UNK

REACTIONS (19)
  - DERMATITIS BULLOUS [None]
  - LEUKOCYTOSIS [None]
  - LIVER FUNCTION TEST ABNORMAL [None]
  - ANTINUCLEAR ANTIBODY POSITIVE [None]
  - APHTHOUS STOMATITIS [None]
  - ENANTHEMA [None]
  - CHEILITIS [None]
  - EOSINOPHILIA [None]
  - NEUTROPHILIA [None]
  - FACE OEDEMA [None]
  - LYMPHADENOPATHY [None]
  - SMOOTH MUSCLE ANTIBODY POSITIVE [None]
  - DRUG RASH WITH EOSINOPHILIA AND SYSTEMIC SYMPTOMS [None]
  - PYREXIA [None]
  - C-REACTIVE PROTEIN INCREASED [None]
  - OEDEMA PERIPHERAL [None]
  - TONSILLITIS [None]
  - RASH MACULO-PAPULAR [None]
  - PETECHIAE [None]
